FAERS Safety Report 14663578 (Version 5)
Quarter: 2020Q1

REPORT INFORMATION
  Report Type: Spontaneous
  Country: US (occurrence: US)
  Receive Date: 20180321
  Receipt Date: 20200205
  Transmission Date: 20200409
  Serious: No
  Sender: FDA-Public Use
  Company Number: US-PFIZER INC-2018118273

PATIENT
  Age: 76 Year
  Sex: Female
  Weight: 64 kg

DRUGS (5)
  1. CELEBREX [Suspect]
     Active Substance: CELECOXIB
     Indication: OSTEOARTHRITIS
     Dosage: 200 MG, 2X/DAY (FOR SEVERAL YEARS)
     Route: 048
  2. VITAMIN C [Concomitant]
     Active Substance: ASCORBIC ACID
     Indication: OSTEOARTHRITIS
     Dosage: 2000 MG, DAILY
  3. CELEBREX [Suspect]
     Active Substance: CELECOXIB
     Dosage: 200 MG, 2X/DAY (ONE CAPSULE IN THE MORNING AND ONE CAPSULE IN THE EVENING)
     Route: 048
  4. VITAMIN D [Concomitant]
     Active Substance: VITAMIN D NOS
     Indication: OSTEOARTHRITIS
     Dosage: UNK, MONTHLY (50000, UNITS NOT PROVIDED)
  5. CALCIUM [Concomitant]
     Active Substance: CALCIUM
     Dosage: 1200 MG, UNK

REACTIONS (1)
  - Influenza [Unknown]
